FAERS Safety Report 9868000 (Version 1)
Quarter: 2014Q1

REPORT INFORMATION
  Report Type: Report from Study
  Country: US (occurrence: US)
  Receive Date: 20140204
  Receipt Date: 20140204
  Transmission Date: 20141002
  Serious: Yes (Hospitalization)
  Sender: FDA-Public Use
  Company Number: US-BRISTOL-MYERS SQUIBB COMPANY-20096707

PATIENT
  Age: 38 Year
  Sex: Female
  Weight: 75 kg

DRUGS (2)
  1. IPILIMUMAB [Suspect]
     Indication: MALIGNANT MELANOMA
     Dosage: INDUCTION THERAPY:Q3WEEKSX4DOSE?MAINTENANCE THERAPY:Q12WEEKS ON WEEKS 24,36,48,60?TOTAL:229MG
     Route: 042
     Dates: start: 20130226, end: 20131031
  2. DEPO-PROVERA [Concomitant]

REACTIONS (1)
  - Alcohol abuse [Unknown]
